FAERS Safety Report 16640968 (Version 2)
Quarter: 2019Q3

REPORT INFORMATION
  Report Type: Spontaneous
  Country: US (occurrence: US)
  Receive Date: 20190729
  Receipt Date: 20190926
  Transmission Date: 20191004
  Serious: Yes (Hospitalization)
  Sender: FDA-Public Use
  Company Number: US-MALLINCKRODT-T201905250

PATIENT
  Age: 51 Year
  Sex: Male

DRUGS (2)
  1. METHADONE [Suspect]
     Active Substance: METHADONE HYDROCHLORIDE
     Indication: DRUG WITHDRAWAL MAINTENANCE THERAPY
     Dosage: 90 MILLIGRAM, QD
     Route: 048
  2. GRAPE [Suspect]
     Active Substance: CONCORD GRAPE\GRAPE
     Indication: PRODUCT USED FOR UNKNOWN INDICATION
     Dosage: APPROXIMATELY 500 ML/DAY, EVERY DAY FOR 3 CONSECUTIVE DAYS
     Route: 048

REACTIONS (6)
  - Toxicity to various agents [Unknown]
  - Hypoxia [Unknown]
  - Food interaction [Unknown]
  - Miosis [Unknown]
  - Bradypnoea [Recovering/Resolving]
  - Unresponsive to stimuli [Unknown]
